FAERS Safety Report 5782235-9 (Version None)
Quarter: 2008Q2

REPORT INFORMATION
  Report Type: 
  Country: None (occurrence: None)
  Receive Date: 20080623
  Receipt Date: 20080612
  Transmission Date: 20081010
  Serious: Yes (Other)
  Sender: FDA-Public Use
  Company Number: US-JNJFOC-20080604595

PATIENT
  Sex: Female

DRUGS (7)
  1. DURAGESIC-100 [Suspect]
     Indication: DIABETIC NEUROPATHY
  2. DURAGESIC-100 [Suspect]
     Indication: FIBROMYALGIA
  3. DURAGESIC-100 [Suspect]
     Indication: ARTHROPATHY
  4. LYRICA [Concomitant]
  5. METANX [Concomitant]
  6. LORTAB [Concomitant]
  7. ZANAFLEX [Concomitant]

REACTIONS (1)
  - MIGRAINE [None]
